FAERS Safety Report 10507868 (Version 1)
Quarter: 2014Q3

REPORT INFORMATION
  Report Type: Spontaneous
  Country: US (occurrence: None)
  Receive Date: 20140915
  Receipt Date: 20140915
  Transmission Date: 20150326
  Serious: Yes (Other)
  Sender: FDA-Public Use
  Company Number: 2013-US-000655

PATIENT
  Age: 30 Year
  Sex: Female

DRUGS (7)
  1. XYREM [Suspect]
     Active Substance: SODIUM OXYBATE
     Indication: INSOMNIA
     Route: 048
     Dates: start: 200902, end: 200903
  2. NORCO (HYDROCODONE BITARTRATE, PARACETAMOL) [Concomitant]
  3. LATUDA (LURASIDONE HYDROCHLORIDE) [Concomitant]
  4. LAMICTAL [Concomitant]
     Active Substance: LAMOTRIGINE
  5. XYREM [Suspect]
     Active Substance: SODIUM OXYBATE
     Indication: FIBROMYALGIA
     Route: 048
     Dates: start: 200902, end: 200903
  6. CLONAZEPAM. [Concomitant]
     Active Substance: CLONAZEPAM
  7. ALLEGRA (FEXOFENADINE HYDROCHLORIDE) [Concomitant]

REACTIONS (6)
  - Hypoxia [None]
  - Weight fluctuation [None]
  - Sleep apnoea syndrome [None]
  - Condition aggravated [None]
  - Respiratory depression [None]
  - Off label use [None]
